FAERS Safety Report 6464688-6 (Version None)
Quarter: 2009Q4

REPORT INFORMATION
  Report Type: 
  Country: None (occurrence: None)
  Receive Date: 20091201
  Receipt Date: 20091123
  Transmission Date: 20100525
  Serious: Yes (Life-Threatening, Hospitalization)
  Sender: FDA-Public Use
  Company Number: GB-BRISTOL-MYERS SQUIBB COMPANY-14868137

PATIENT
  Age: 37 Year
  Sex: Male

DRUGS (6)
  1. AMOXICILLIN [Suspect]
     Indication: TOOTH INFECTION
     Dates: start: 20080101, end: 20080101
  2. CIPROFLOXACIN [Suspect]
     Indication: INFECTION
     Dates: start: 20080101, end: 20080101
  3. PIPERACILLIN AND TAZOBACTAM [Suspect]
     Indication: INFECTION
     Dates: start: 20080101, end: 20080101
  4. GENTAMICIN [Suspect]
     Indication: INFECTION
     Dates: start: 20080101, end: 20080101
  5. CLINDAMYCIN [Suspect]
     Indication: INFECTION
     Dates: start: 20080101, end: 20080101
  6. METRONIDAZOLE [Suspect]
     Indication: INFECTION
     Dates: start: 20080101, end: 20080101

REACTIONS (1)
  - DRUG RASH WITH EOSINOPHILIA AND SYSTEMIC SYMPTOMS [None]
